FAERS Safety Report 9227217 (Version 2)
Quarter: 2013Q2

REPORT INFORMATION
  Report Type: Spontaneous
  Country: BR (occurrence: BR)
  Receive Date: 20130412
  Receipt Date: 20130625
  Transmission Date: 20140414
  Serious: Yes (Other)
  Sender: FDA-Public Use
  Company Number: PHHY2013BR033623

PATIENT
  Age: 11 Year
  Sex: Male
  Weight: 60 kg

DRUGS (3)
  1. RITALINA [Suspect]
     Indication: PSYCHOMOTOR HYPERACTIVITY
     Dosage: 1 DF, DAILY
     Route: 048
     Dates: start: 20120712, end: 201302
  2. BEROTEC [Concomitant]
  3. DESLORATADINA [Concomitant]
     Dosage: 7.5 MG, DAILY
     Route: 048

REACTIONS (8)
  - Asthma [Recovered/Resolved]
  - Fatigue [Recovered/Resolved]
  - Increased bronchial secretion [Not Recovered/Not Resolved]
  - Cough [Not Recovered/Not Resolved]
  - Concomitant disease aggravated [Not Recovered/Not Resolved]
  - Disturbance in attention [Not Recovered/Not Resolved]
  - Nervousness [Not Recovered/Not Resolved]
  - Insomnia [Not Recovered/Not Resolved]
